FAERS Safety Report 13657438 (Version 2)
Quarter: 2017Q3

REPORT INFORMATION
  Report Type: Spontaneous
  Country: HR (occurrence: HR)
  Receive Date: 20170615
  Receipt Date: 20170726
  Transmission Date: 20171127
  Serious: Yes (Hospitalization, Other)
  Sender: FDA-Public Use
  Company Number: HR-NORTH CREEK PHARMACEUTICALS LLC-2017VTS00633

PATIENT
  Age: 45 Year
  Sex: Male
  Weight: 90 kg

DRUGS (6)
  1. DAPSONE. [Suspect]
     Active Substance: DAPSONE
     Indication: HYPERSENSITIVITY VASCULITIS
     Dosage: 200 MG, 1X/DAY (^2 X 100 MG^)
     Route: 048
     Dates: start: 20160520, end: 20170709
  2. METHYLPREDNISOLONE. [Concomitant]
     Active Substance: METHYLPREDNISOLONE
     Dosage: 16 MG, 1X/DAY
     Route: 065
  3. PANTOPRAZOLE [Concomitant]
     Active Substance: PANTOPRAZOLE
     Dosage: 20 MG, 1X/DAY
     Route: 048
     Dates: start: 20160425
  4. INSULIN [Concomitant]
     Active Substance: INSULIN NOS
     Dosage: ADJUSTED TO GLUCOSE LEVELS
     Route: 065
  5. METFORMIN [Concomitant]
     Active Substance: METFORMIN HYDROCHLORIDE
     Dosage: 500 MG, 2X/DAY
     Route: 065
  6. IBUPROFEN. [Concomitant]
     Active Substance: IBUPROFEN
     Dosage: 400 MG, 1X/DAY
     Route: 065
     Dates: start: 20160415

REACTIONS (8)
  - Headache [Recovered/Resolved]
  - Methaemoglobinaemia [Recovered/Resolved]
  - Nausea [Recovered/Resolved]
  - Normocytic anaemia [Recovering/Resolving]
  - Agranulocytosis [Recovered/Resolved]
  - Pneumonia [Recovered/Resolved]
  - Dental necrosis [Recovered/Resolved]
  - Vomiting [Recovered/Resolved]

NARRATIVE: CASE EVENT DATE: 20160704
